FAERS Safety Report 7922621-1 (Version None)
Quarter: 2011Q4

REPORT INFORMATION
  Report Type: 
  Country: None (occurrence: None)
  Receive Date: 20111117
  Receipt Date: 20110121
  Transmission Date: 20120403
  Serious: No
  Sender: FDA-Public Use
  Company Number: US-AMGEN-USASP2011003876

PATIENT
  Age: 66 Year
  Sex: Female

DRUGS (2)
  1. ENBREL [Suspect]
     Indication: RHEUMATOID ARTHRITIS
     Dates: start: 20100318, end: 20101201
  2. METHOTREXATE [Concomitant]
     Dates: start: 20090801

REACTIONS (6)
  - ERYTHEMA [None]
  - RASH VESICULAR [None]
  - PRURITUS [None]
  - DRY SKIN [None]
  - SKIN ULCER [None]
  - INDURATION [None]
